FAERS Safety Report 9550663 (Version 1)
Quarter: 2013Q3

REPORT INFORMATION
  Report Type: Spontaneous
  Country: US (occurrence: US)
  Receive Date: 20130924
  Receipt Date: 20130924
  Transmission Date: 20140515
  Serious: No
  Sender: FDA-Public Use
  Company Number: US-SANOFI-AVENTIS-2013SA044545

PATIENT
  Age: 76 Year
  Sex: Female
  Weight: 44.45 kg

DRUGS (5)
  1. AUBAGIO [Suspect]
     Indication: MULTIPLE SCLEROSIS
     Route: 048
     Dates: start: 20130420, end: 20130516
  2. MIRTAZAPINE [Concomitant]
     Dates: start: 2012
  3. FLUOXETINE HYDROCHLORIDE [Concomitant]
     Dates: start: 2012
  4. OXYCODONE [Concomitant]
     Dates: start: 2011
  5. LUNESTA [Concomitant]
     Dates: start: 2013

REACTIONS (2)
  - Trigeminal neuralgia [Recovered/Resolved]
  - Facial pain [Recovered/Resolved]
